FAERS Safety Report 13926636 (Version 2)
Quarter: 2017Q3

REPORT INFORMATION
  Report Type: Report from Study
  Country: GB (occurrence: GB)
  Receive Date: 20170901
  Receipt Date: 20170908
  Transmission Date: 20171127
  Serious: Yes (Death, Hospitalization)
  Sender: FDA-Public Use
  Company Number: PHFR2017GB007240

PATIENT
  Sex: Female

DRUGS (3)
  1. ENTRESTO [Suspect]
     Active Substance: SACUBITRIL\VALSARTAN
     Indication: CARDIAC FAILURE
     Dosage: 1 DF (24 MG SACUBITRIL AND 26 MG VALSARTAN), BID
     Route: 048
     Dates: start: 20170303
  2. DOPAMINE [Concomitant]
     Active Substance: DOPAMINE\DOPAMINE HYDROCHLORIDE
     Indication: PRODUCT USED FOR UNKNOWN INDICATION
     Route: 041
  3. FRUSEMIDE [Concomitant]
     Active Substance: FUROSEMIDE
     Indication: PRODUCT USED FOR UNKNOWN INDICATION
     Route: 041

REACTIONS (10)
  - Left ventricular dysfunction [Fatal]
  - Atrial tachycardia [Unknown]
  - Cardiac failure [Fatal]
  - Pulmonary congestion [Unknown]
  - Renal impairment [Not Recovered/Not Resolved]
  - Hypotension [Unknown]
  - Conduction disorder [Unknown]
  - Malaise [Unknown]
  - Arrhythmia supraventricular [Unknown]
  - Oedema peripheral [Unknown]
